FAERS Safety Report 4821049-0 (Version None)
Quarter: 2005Q4

REPORT INFORMATION
  Report Type: 
  Country: None (occurrence: None)
  Receive Date: 20051104
  Receipt Date: 20051021
  Transmission Date: 20060501
  Serious: Yes (Hospitalization)
  Sender: FDA-Public Use
  Company Number: FRWYE080021OCT05

PATIENT
  Sex: Male

DRUGS (2)
  1. ENBREL [Interacting]
     Indication: PSORIASIS
     Route: 058
     Dates: start: 20050531, end: 20051014
  2. METHOTREXATE [Suspect]

REACTIONS (4)
  - BRONCHITIS [None]
  - DRUG INTERACTION [None]
  - PANCYTOPENIA [None]
  - THERAPEUTIC RESPONSE DECREASED [None]
